FAERS Safety Report 24966866 (Version 1)
Quarter: 2025Q1

REPORT INFORMATION
  Report Type: Spontaneous
  Country: CN (occurrence: CN)
  Receive Date: 20250213
  Receipt Date: 20250213
  Transmission Date: 20250408
  Serious: Yes (Hospitalization, Other)
  Sender: PFIZER
  Company Number: CN-PFIZER INC-PV202500015517

PATIENT
  Age: 35 Year
  Sex: Female
  Weight: 60 kg

DRUGS (4)
  1. PACLITAXEL [Suspect]
     Active Substance: PACLITAXEL
     Indication: Neoplasm malignant
     Dosage: 30.000 MG, 1X/DAY
     Route: 041
     Dates: start: 20250115, end: 20250115
  2. PACLITAXEL [Suspect]
     Active Substance: PACLITAXEL
     Indication: Cervix neoplasm
     Dosage: 180.000 MG, 1X/DAY
     Route: 041
     Dates: start: 20250115, end: 20250115
  3. CISPLATIN [Concomitant]
     Active Substance: CISPLATIN
     Indication: Neoplasm malignant
     Dosage: 90.000 MG, 1X/DAY
     Route: 041
     Dates: start: 20250115, end: 20250115
  4. CISPLATIN [Concomitant]
     Active Substance: CISPLATIN
     Indication: Cervix neoplasm

REACTIONS (6)
  - Myelosuppression [Recovering/Resolving]
  - Infection [Recovering/Resolving]
  - Anaemia [Recovering/Resolving]
  - Haematuria [Recovering/Resolving]
  - Pyrexia [Recovering/Resolving]
  - Discomfort [Recovering/Resolving]

NARRATIVE: CASE EVENT DATE: 20250124
